FAERS Safety Report 24313736 (Version 1)
Quarter: 2024Q3

REPORT INFORMATION
  Report Type: Spontaneous
  Country: CN (occurrence: CN)
  Receive Date: 20240912
  Receipt Date: 20240912
  Transmission Date: 20241017
  Serious: Yes (Other)
  Sender: MERCK
  Company Number: CN-009507513-2409CHN002545

PATIENT
  Age: 64 Year
  Sex: Male

DRUGS (2)
  1. CILASTATIN SODIUM\IMIPENEM [Suspect]
     Active Substance: CILASTATIN SODIUM\IMIPENEM
     Indication: Anti-infective therapy
     Dosage: 1 G, TID
     Route: 041
     Dates: start: 20240824, end: 20240824
  2. SODIUM CHLORIDE [Concomitant]
     Active Substance: SODIUM CHLORIDE
     Indication: Medication dilution
     Dosage: 100 MILLILITER
     Route: 041
     Dates: start: 20240824, end: 20240824

REACTIONS (3)
  - Altered state of consciousness [Unknown]
  - Muscle twitching [Recovering/Resolving]
  - Staring [Unknown]

NARRATIVE: CASE EVENT DATE: 20240824
